FAERS Safety Report 7750741-3 (Version None)
Quarter: 2011Q3

REPORT INFORMATION
  Report Type: 
  Country: None (occurrence: None)
  Receive Date: 20110914
  Receipt Date: 20110830
  Transmission Date: 20111222
  Serious: Yes (Hospitalization)
  Sender: FDA-Public Use
  Company Number: AU-B.I. PHARMACEUTICALS,INC./RIDGEFIELD-2011-AU-01338AU

PATIENT
  Sex: Male

DRUGS (5)
  1. CARTIA XT [Concomitant]
     Dosage: 100 MG
     Dates: start: 20080101, end: 20110904
  2. CRESTOR [Concomitant]
     Dosage: 10 MG
     Dates: start: 20110501
  3. PRADAXA [Suspect]
     Indication: ATRIAL FIBRILLATION
     Dosage: 300 MG
     Dates: start: 20110713, end: 20110830
  4. LANOXIN [Concomitant]
     Dosage: 62.5 MCG
     Dates: start: 20060101
  5. SERC [Concomitant]
     Dosage: 16 MG
     Dates: start: 20100101

REACTIONS (3)
  - CELLULITIS [None]
  - OEDEMA PERIPHERAL [None]
  - SEPSIS [None]
